FAERS Safety Report 7184584-9 (Version None)
Quarter: 2010Q4

REPORT INFORMATION
  Report Type: 
  Country: None (occurrence: None)
  Receive Date: 20101222
  Receipt Date: 20101213
  Transmission Date: 20110411
  Serious: Yes (Death, Hospitalization)
  Sender: FDA-Public Use
  Company Number: US-ELI_LILLY_AND_COMPANY-US201010007284

PATIENT
  Sex: Female
  Weight: 91.61 kg

DRUGS (20)
  1. ALIMTA [Suspect]
     Indication: LUNG ADENOCARCINOMA
     Dosage: 500 MG/M2, UNK
     Dates: start: 20100526, end: 20100526
  2. LOMOTIL [Concomitant]
  3. ANTIEMETICS AND ANTINAUSEANTS [Concomitant]
  4. ADVAIR [Concomitant]
     Dosage: 1 D/F, 2/D
     Route: 055
     Dates: start: 20091029
  5. CITALOPRAM [Concomitant]
     Dosage: 20 MG, DAILY (1/D)
     Dates: start: 20100603
  6. DILTIAZEM [Concomitant]
     Dosage: 180 MG, DAILY (1/D)
     Dates: start: 20100515
  7. DIPHENOXYLATE HCL + ATROPINE SULFATE [Concomitant]
     Dosage: 2 D/F, 4/D
     Dates: start: 20100601
  8. FUROSEMIDE [Concomitant]
     Dosage: 80 MG, DAILY (1/D)
     Dates: start: 20060726
  9. IPRATROPIUM BROMIDE [Concomitant]
     Dosage: 1 U, EVERY 6 HRS
     Route: 055
     Dates: start: 20070814
  10. LANTUS [Concomitant]
     Dosage: 30 U, DAILY (1/D)
     Route: 058
     Dates: start: 20060726
  11. OXYCODONE [Concomitant]
     Dosage: 5 MG, AS NEEDED
     Dates: start: 20100601
  12. OXYCODONE HCL AND ACETAMINOPHEN [Concomitant]
     Dosage: 1 D/F, AS NEEDED
     Dates: start: 20100429
  13. OXYGEN [Concomitant]
     Dosage: 1 LITER, AS NEEDED
     Dates: start: 20091111
  14. PEPCID [Concomitant]
     Dosage: 10 MG, 2/D
     Dates: start: 20100603
  15. PREDNISONE [Concomitant]
     Dosage: 10 MG, UNK
     Dates: start: 20100519
  16. PREDNISONE [Concomitant]
     Dosage: 5 MG, UNK
     Dates: start: 20100429
  17. PROVENTIL /00139501/ [Concomitant]
     Dosage: UNK, AS NEEDED
     Dates: start: 20091029
  18. SINGULAIR [Concomitant]
     Dosage: 10 MG, EACH EVENING
     Dates: start: 20060726
  19. SPIRIVA [Concomitant]
     Dosage: 18 UG, DAILY (1/D)
     Route: 055
     Dates: start: 20060728
  20. VALACICLOVIR [Concomitant]
     Dosage: 1 G, 3/D

REACTIONS (17)
  - CARDIAC FAILURE [None]
  - CHRONIC OBSTRUCTIVE PULMONARY DISEASE [None]
  - CONFUSIONAL STATE [None]
  - DIARRHOEA [None]
  - DYSPNOEA [None]
  - EMPHYSEMA [None]
  - FATIGUE [None]
  - GENERAL PHYSICAL HEALTH DETERIORATION [None]
  - HERPES OESOPHAGITIS [None]
  - HYPERSENSITIVITY [None]
  - HYPOPHAGIA [None]
  - LABORATORY TEST ABNORMAL [None]
  - MALIGNANT NEOPLASM PROGRESSION [None]
  - MUCOSAL INFLAMMATION [None]
  - NAUSEA [None]
  - PULMONARY FIBROSIS [None]
  - RESPIRATORY FAILURE [None]
